FAERS Safety Report 7934427-8 (Version None)
Quarter: 2011Q4

REPORT INFORMATION
  Report Type: 
  Country: None (occurrence: None)
  Receive Date: 20111122
  Receipt Date: 20111117
  Transmission Date: 20120403
  Serious: Yes (Hospitalization, Other)
  Sender: FDA-Public Use
  Company Number: US-GLAXOSMITHKLINE-A0953756A

PATIENT
  Sex: Male

DRUGS (2)
  1. KEPPRA [Concomitant]
  2. LAMICTAL XR [Suspect]
     Indication: EPILEPSY
     Dosage: 100MG PER DAY
     Route: 048

REACTIONS (2)
  - ILL-DEFINED DISORDER [None]
  - WHITE BLOOD CELL COUNT ABNORMAL [None]
